FAERS Safety Report 22654895 (Version 3)
Quarter: 2024Q2

REPORT INFORMATION
  Report Type: Spontaneous
  Country: US (occurrence: US)
  Receive Date: 20230629
  Receipt Date: 20240502
  Transmission Date: 20240716
  Serious: Yes (Hospitalization, Other)
  Sender: FDA-Public Use
  Company Number: US-ABBVIE-5308909

PATIENT
  Age: 72 Year
  Sex: Male

DRUGS (6)
  1. LUPRON [Suspect]
     Active Substance: LEUPROLIDE ACETATE
     Indication: Product used for unknown indication
     Route: 030
  2. COREG [Suspect]
     Active Substance: CARVEDILOL
     Indication: Product used for unknown indication
     Route: 065
  3. ENZALUTAMIDE [Suspect]
     Active Substance: ENZALUTAMIDE
     Indication: Product used for unknown indication
     Route: 065
     Dates: start: 20230613
  4. SACITUZUMAB GOVITECAN [Suspect]
     Active Substance: SACITUZUMAB GOVITECAN
     Indication: Prostate cancer metastatic
     Route: 042
     Dates: start: 20230501, end: 20230518
  5. SACITUZUMAB GOVITECAN [Suspect]
     Active Substance: SACITUZUMAB GOVITECAN
     Indication: Prostate cancer metastatic
     Dosage: REDUCED DOSE
     Route: 042
     Dates: start: 20230518, end: 20230612
  6. PRADAXA [Suspect]
     Active Substance: DABIGATRAN ETEXILATE MESYLATE
     Indication: Product used for unknown indication
     Route: 065

REACTIONS (16)
  - Pulmonary hypertension [Unknown]
  - Syncope [Unknown]
  - Respiratory acidosis [Unknown]
  - Blood lactic acid increased [Unknown]
  - Hypokalaemia [Unknown]
  - Effusion [Unknown]
  - Mitral valve incompetence [Unknown]
  - Brain natriuretic peptide increased [Unknown]
  - Heart failure with preserved ejection fraction [Unknown]
  - Pleural effusion [Recovering/Resolving]
  - Acute respiratory failure [Unknown]
  - Atelectasis [Unknown]
  - Polyuria [Unknown]
  - Blood pressure decreased [Unknown]
  - Hypoxia [Recovering/Resolving]
  - Lung infiltration [Recovering/Resolving]

NARRATIVE: CASE EVENT DATE: 20230612
